FAERS Safety Report 4656960-7 (Version None)
Quarter: 2005Q2

REPORT INFORMATION
  Report Type: 
  Country: None (occurrence: None)
  Receive Date: 20050408
  Receipt Date: 20050119
  Transmission Date: 20051028
  Serious: No
  Sender: FDA-Public Use
  Company Number: 230245K05USA

PATIENT
  Age: 44 Year
  Sex: Female

DRUGS (3)
  1. REBIF [Suspect]
     Indication: MULTIPLE SCLEROSIS
     Dosage: 8.8 MCG,
     Dates: start: 20050106
  2. TYLENOL [Concomitant]
  3. ALEVE [Concomitant]

REACTIONS (1)
  - NAUSEA [None]
